FAERS Safety Report 10543708 (Version 3)
Quarter: 2015Q2

REPORT INFORMATION
  Report Type: Spontaneous
  Country: JP (occurrence: JP)
  Receive Date: 20141027
  Receipt Date: 20150520
  Transmission Date: 20150821
  Serious: Yes (Other)
  Sender: FDA-Public Use
  Company Number: JP-ASTRAZENECA-2014SE79538

PATIENT
  Sex: Female

DRUGS (1)
  1. MARCAINE [Suspect]
     Active Substance: BUPIVACAINE HYDROCHLORIDE
     Indication: SPINAL ANAESTHESIA
     Dosage: 11 MG, 2.2 ML, UNKNOWN
     Route: 029
     Dates: start: 201312, end: 201312

REACTIONS (2)
  - Thermal burn [Recovered/Resolved with Sequelae]
  - Skin ulcer [Unknown]

NARRATIVE: CASE EVENT DATE: 201312
